FAERS Safety Report 5672364-2 (Version None)
Quarter: 2008Q2

REPORT INFORMATION
  Report Type: 
  Country: None (occurrence: None)
  Receive Date: 20080219
  Receipt Date: 20071030
  Transmission Date: 20081010
  Serious: No
  Sender: FDA-Public Use
  Company Number: TPA2007A02231

PATIENT
  Age: 32 Year
  Sex: Female
  Weight: 61.2356 kg

DRUGS (3)
  1. ROZEREM [Suspect]
     Indication: INSOMNIA
     Dosage: 8 MG, QHS, PER ORAL
     Route: 048
     Dates: start: 20071012
  2. AMBIEN CR [Suspect]
     Indication: INSOMNIA
     Dosage: QHS PRN, PER ORAL
     Route: 048
     Dates: start: 20060101
  3. SEASONAL (ETHINYLESTRADIOL, LEVONORGESTREL) [Concomitant]

REACTIONS (3)
  - INITIAL INSOMNIA [None]
  - INSOMNIA [None]
  - PREMENSTRUAL SYNDROME [None]
